FAERS Safety Report 4806474-6 (Version None)
Quarter: 2005Q4

REPORT INFORMATION
  Report Type: 
  Country: None (occurrence: None)
  Receive Date: 20051019
  Receipt Date: 20051011
  Transmission Date: 20060501
  Serious: Yes (Other)
  Sender: FDA-Public Use
  Company Number: 2005131938

PATIENT
  Age: 57 Year
  Sex: Male
  Weight: 68.0396 kg

DRUGS (4)
  1. ACCUPRIL [Suspect]
     Indication: HYPERTENSION
     Dosage: 20 MG (20 MG, 1 IN 1 D), ORAL/ABOUT 5 YEARS AGO
     Route: 048
  2. ZYRTEC [Suspect]
     Indication: PRURITUS
     Dosage: SEE IMAGE/ABOUT IN 2002
  3. CELEBREX [Suspect]
     Indication: ARTHRITIS
     Dosage: 200 MG (200 MG, 1 IN 1 D), ORAL
     Route: 048
  4. TOBACCO (NICOTIANA TABACUM) [Suspect]
     Indication: ILL-DEFINED DISORDER

REACTIONS (9)
  - ARTHRITIS [None]
  - GASTRIC DISORDER [None]
  - HEPATIC NEOPLASM MALIGNANT [None]
  - HOMELESS [None]
  - NEOPLASM MALIGNANT [None]
  - PAIN [None]
  - PHARMACEUTICAL PRODUCT COMPLAINT [None]
  - SMALL CELL LUNG CANCER STAGE UNSPECIFIED [None]
  - TOBACCO ABUSE [None]
